FAERS Safety Report 20826126 (Version 1)
Quarter: 2022Q2

REPORT INFORMATION
  Report Type: Spontaneous
  Country: PS (occurrence: PS)
  Receive Date: 20220513
  Receipt Date: 20220513
  Transmission Date: 20220721
  Serious: Yes (Death, Hospitalization, Other)
  Sender: FDA-Public Use
  Company Number: PS-SLATE RUN PHARMACEUTICALS-22PS001084

PATIENT

DRUGS (7)
  1. VANCOMYCIN HYDROCHLORIDE [Suspect]
     Active Substance: VANCOMYCIN HYDROCHLORIDE
     Indication: Cellulitis orbital
     Dosage: 1 GRAM, BID
  2. CEFTRIAXONE [Concomitant]
     Active Substance: CEFTRIAXONE
     Indication: Facial paralysis
     Dosage: 2 GRAM, QD
  3. DEXAMETHASONE [Concomitant]
     Active Substance: DEXAMETHASONE
     Indication: Facial paralysis
     Dosage: 4 MILLIGRAM, TID
  4. UNSPECIFIED INGREDIENT [Concomitant]
     Active Substance: UNSPECIFIED INGREDIENT
     Indication: COVID-19
  5. PIPERACILLIN AND TAZOBACTAM [Concomitant]
     Active Substance: PIPERACILLIN SODIUM\TAZOBACTAM SODIUM
     Indication: Cellulitis orbital
     Dosage: 4.5 GRAM, QID
  6. ENOXAPARIN [Concomitant]
     Active Substance: ENOXAPARIN
     Indication: Cellulitis orbital
     Dosage: 80 MILLIGRAM, BID
  7. METHYLPREDNISOLONE [Concomitant]
     Active Substance: METHYLPREDNISOLONE
     Indication: Cellulitis orbital
     Dosage: 1 GRAM, QD

REACTIONS (8)
  - Cardiac arrest [Fatal]
  - Rhinocerebral mucormycosis [Fatal]
  - Diabetic ketoacidosis [Unknown]
  - Sinusitis [Unknown]
  - Cerebral infarction [Unknown]
  - Cavernous sinus thrombosis [Unknown]
  - Metabolic acidosis [Unknown]
  - Loss of consciousness [Unknown]
